FAERS Safety Report 7609439-4 (Version None)
Quarter: 2011Q3

REPORT INFORMATION
  Report Type: 
  Country: None (occurrence: None)
  Receive Date: 20110714
  Receipt Date: 20110708
  Transmission Date: 20111222
  Serious: Yes (Other)
  Sender: FDA-Public Use
  Company Number: US-AMGEN-USASP2011034852

PATIENT
  Sex: Male

DRUGS (2)
  1. TARCEVA [Concomitant]
  2. XGEVA [Suspect]
     Indication: METASTASES TO BONE
     Dosage: 120 MG, Q4WK
     Dates: start: 20110101

REACTIONS (2)
  - VENOUS INSUFFICIENCY [None]
  - ANAEMIA [None]
